FAERS Safety Report 5536195-6 (Version None)
Quarter: 2007Q4

REPORT INFORMATION
  Report Type: 
  Country: None (occurrence: None)
  Receive Date: 20071120
  Receipt Date: 20070907
  Transmission Date: 20080405
  Serious: No
  Sender: FDA-Public Use
  Company Number: WAES 0709USA01101

PATIENT
  Age: 69 Year
  Sex: Male
  Weight: 87.5442 kg

DRUGS (9)
  1. JANUVIA [Suspect]
     Indication: DIABETES MELLITUS
     Dosage: 100 MG DAILY PO, 1/2 TABLET PO
     Route: 048
     Dates: start: 20070820, end: 20070821
  2. JANUVIA [Suspect]
     Indication: DIABETES MELLITUS
     Dosage: 100 MG DAILY PO, 1/2 TABLET PO
     Route: 048
     Dates: start: 20070821, end: 20070821
  3. ACTOS [Concomitant]
  4. FLOMAX [Concomitant]
  5. LOTREL [Concomitant]
  6. NEXIUM [Concomitant]
  7. FUROSEMIDE [Concomitant]
  8. GLYBURIDE [Concomitant]
  9. SIMVASTATIN [Concomitant]

REACTIONS (2)
  - DIZZINESS [None]
  - WRONG TECHNIQUE IN DRUG USAGE PROCESS [None]
